FAERS Safety Report 9556914 (Version 1)
Quarter: 2013Q3

REPORT INFORMATION
  Report Type: Spontaneous
  Country: US (occurrence: US)
  Receive Date: 20130926
  Receipt Date: 20130926
  Transmission Date: 20140515
  Serious: Yes (Other)
  Sender: FDA-Public Use
  Company Number: US-PFIZER INC-2013270449

PATIENT
  Age: 64 Year
  Sex: Female
  Weight: 121.5 kg

DRUGS (2)
  1. PREPARATION H HEMORRHOIDAL SUPPOSITORIES [Suspect]
     Indication: HAEMORRHOIDS
     Dosage: UNK, AS NEEDED
     Route: 054
  2. PREPARATION H HEMORRHOIDAL SUPPOSITORIES [Suspect]
     Indication: HAEMORRHOIDS
     Dosage: UNK, AS NEEDED
     Route: 054
     Dates: start: 201308

REACTIONS (4)
  - Rectal haemorrhage [Recovered/Resolved]
  - Body height decreased [Unknown]
  - Venous insufficiency [Unknown]
  - Drug effect decreased [Unknown]
